FAERS Safety Report 20217182 (Version 1)
Quarter: 2021Q4

REPORT INFORMATION
  Report Type: Spontaneous
  Country: IE (occurrence: IE)
  Receive Date: 20211222
  Receipt Date: 20211222
  Transmission Date: 20220303
  Serious: Yes (Hospitalization, Other)
  Sender: FDA-Public Use
  Company Number: None

PATIENT
  Age: 84 Year
  Sex: Female

DRUGS (1)
  1. VANCOMYCIN [Suspect]
     Active Substance: VANCOMYCIN
     Indication: Localised infection
     Dosage: 2 GRAM
     Route: 042
     Dates: start: 20210908, end: 20210908

REACTIONS (5)
  - Feeling hot [Recovered/Resolved]
  - Pruritus [Recovered/Resolved]
  - Red man syndrome [Recovered/Resolved]
  - Product reconstitution quality issue [Recovered/Resolved]
  - Incorrect drug administration rate [Recovered/Resolved]

NARRATIVE: CASE EVENT DATE: 20210908
